FAERS Safety Report 16935726 (Version 1)
Quarter: 2019Q4

REPORT INFORMATION
  Report Type: Spontaneous
  Country: US (occurrence: US)
  Receive Date: 20191018
  Receipt Date: 20191018
  Transmission Date: 20200122
  Serious: No
  Sender: FDA-Public Use
  Company Number: US-VERTEX PHARMACEUTICALS-2019-009918

PATIENT
  Age: 6 Year
  Sex: Female

DRUGS (7)
  1. PULMOZYME [Concomitant]
     Active Substance: DORNASE ALFA
  2. MIRALAX [Concomitant]
     Active Substance: POLYETHYLENE GLYCOL 3350
  3. PROAIR HFA [Concomitant]
     Active Substance: ALBUTEROL SULFATE
  4. CREON [Concomitant]
     Active Substance: PANCRELIPASE AMYLASE\PANCRELIPASE LIPASE\PANCRELIPASE PROTEASE
  5. ATROVENT HFA [Concomitant]
     Active Substance: IPRATROPIUM BROMIDE
  6. ORKAMBI [Suspect]
     Active Substance: IVACAFTOR\LUMACAFTOR
     Indication: CYSTIC FIBROSIS
     Dosage: 1 PACKET (150/188 MG GRANULES), BID
     Route: 048
     Dates: start: 20181030, end: 2019
  7. FLONASE [MOMETASONE FUROATE] [Concomitant]
     Active Substance: MOMETASONE FUROATE

REACTIONS (1)
  - Hepatic enzyme increased [Unknown]

NARRATIVE: CASE EVENT DATE: 201905
